FAERS Safety Report 9779601 (Version 2)
Quarter: 2014Q1

REPORT INFORMATION
  Report Type: Spontaneous
  Country: US (occurrence: US)
  Receive Date: 20131223
  Receipt Date: 20140117
  Transmission Date: 20141002
  Serious: No
  Sender: FDA-Public Use
  Company Number: US-PFIZER INC-2013363526

PATIENT
  Age: 21 Year
  Sex: Female

DRUGS (1)
  1. DEPO-PROVERA [Suspect]
     Indication: CONTRACEPTION
     Dosage: UNK
     Dates: end: 201310

REACTIONS (2)
  - Mood swings [Unknown]
  - Weight increased [Unknown]
